FAERS Safety Report 19242247 (Version 1)
Quarter: 2021Q2

REPORT INFORMATION
  Report Type: Spontaneous
  Country: GB (occurrence: GB)
  Receive Date: 20210511
  Receipt Date: 20210511
  Transmission Date: 20210717
  Serious: Yes (Other)
  Sender: FDA-Public Use
  Company Number: GB-TEVA-2021-GB-1909751

PATIENT
  Age: 7 Year
  Sex: Male
  Weight: 21 kg

DRUGS (2)
  1. MONTELUKAST [Suspect]
     Active Substance: MONTELUKAST SODIUM
     Dosage: 5 MILLIGRAM DAILY; AT NIGHT
     Route: 048
     Dates: start: 20200804
  2. SALBUTAMOL [Concomitant]
     Active Substance: ALBUTEROL
     Dosage: VIA SPACER, UNIT DOSE : 2 DOSAGE FORMS
     Route: 055
     Dates: start: 20210415

REACTIONS (2)
  - Nightmare [Recovered/Resolved]
  - Abnormal behaviour [Unknown]
